FAERS Safety Report 14718881 (Version 3)
Quarter: 2018Q2

REPORT INFORMATION
  Report Type: Spontaneous
  Country: US (occurrence: US)
  Receive Date: 20180405
  Receipt Date: 20180430
  Transmission Date: 20180711
  Serious: Yes (Hospitalization, Other)
  Sender: FDA-Public Use
  Company Number: US-009507513-1804USA000062

PATIENT
  Sex: Female

DRUGS (1)
  1. NEXPLANON [Suspect]
     Active Substance: ETONOGESTREL
     Dosage: 1 DF, UNK, LEFT ARM
     Route: 059
     Dates: start: 20180327

REACTIONS (4)
  - Implant site oedema [Unknown]
  - Postpartum venous thrombosis [Unknown]
  - Adverse event [Unknown]
  - Implant site pain [Unknown]

NARRATIVE: CASE EVENT DATE: 2018
